FAERS Safety Report 18989178 (Version 5)
Quarter: 2021Q2

REPORT INFORMATION
  Report Type: Report from Study
  Country: DE (occurrence: DE)
  Receive Date: 20210309
  Receipt Date: 20210514
  Transmission Date: 20210717
  Serious: Yes (Other)
  Sender: FDA-Public Use
  Company Number: DE-PFIZER INC-2021210157

PATIENT
  Age: 42 Year
  Sex: Male
  Weight: 94 kg

DRUGS (34)
  1. IPRATROPIUM TEVA [Concomitant]
     Indication: DYSPNOEA
     Dosage: 250 UG, 1X/DAY
     Route: 055
     Dates: start: 20191130, end: 20191204
  2. FENISTIL [Concomitant]
     Active Substance: DIMETHINDENE
     Indication: DRUG ERUPTION
     Dosage: 4 MG, 1X/DAY
     Route: 042
     Dates: start: 20191203, end: 20191203
  3. ARTERENOL [Concomitant]
     Active Substance: NOREPINEPHRINE HYDROCHLORIDE, (+/-)-
     Indication: SEPSIS
     Dosage: 100 UG/ML, CONTINUOUS
     Route: 042
     Dates: start: 20191202, end: 20191203
  4. MST [MORPHINE SULFATE] [Concomitant]
     Active Substance: MORPHINE SULFATE
     Indication: PAIN
     Dosage: 20 MG, 2X/DAY
     Route: 048
     Dates: start: 20191204
  5. BEPANTHEN [DEXPANTHENOL] [Concomitant]
     Active Substance: DEXPANTHENOL
     Indication: ORAL DISORDER
     Dosage: 1 ML, 1X/DAY, MOUTH RINSING SOLUTION
     Route: 048
     Dates: start: 20191208
  6. SALVIA OFFICINALIS [Concomitant]
     Indication: ORAL DISORDER
     Dosage: 1 IU, 4X/DAY
     Route: 048
     Dates: start: 20191126
  7. DAUNORUBICIN HCL [Suspect]
     Active Substance: DAUNORUBICIN HYDROCHLORIDE
     Indication: ACUTE MYELOID LEUKAEMIA
     Dosage: 60 MG/M2, DAILY BY CONTINUOUS INFUSION
     Route: 041
     Dates: start: 20191126, end: 20191128
  8. PANTOPRAZOL [PANTOPRAZOLE SODIUM SESQUIHYDRATE] [Concomitant]
     Active Substance: PANTOPRAZOLE SODIUM
     Indication: GASTRITIS
     Dosage: 40 MG, 1X/DAY
     Route: 048
     Dates: start: 20191126, end: 20191210
  9. FURORESE [FUROSEMIDE] [Concomitant]
     Active Substance: FUROSEMIDE
     Indication: OEDEMA PERIPHERAL
     Dosage: 40 MG, 2X/DAY
     Route: 042
     Dates: start: 20191130, end: 20191209
  10. VALACICLOVIR [Concomitant]
     Active Substance: VALACYCLOVIR HYDROCHLORIDE
     Indication: PROPHYLAXIS
     Dosage: 500 MG, 2X/DAY
     Route: 048
     Dates: start: 20191204
  11. MOVICOL [Concomitant]
     Active Substance: POLYETHYLENE GLYCOL 3350\POTASSIUM CHLORIDE\SODIUM BICARBONATE\SODIUM CHLORIDE
     Indication: CONSTIPATION PROPHYLAXIS
     Dosage: 1 IU, 2X/DAY
     Route: 048
     Dates: start: 20191204, end: 20191207
  12. DOLANTIN [Concomitant]
     Active Substance: MEPERIDINE
     Indication: SEPSIS
     Dosage: 50 MG, 1X/DAY
     Route: 042
     Dates: start: 20191203, end: 20191205
  13. CYTARABINE. [Suspect]
     Active Substance: CYTARABINE
     Indication: ACUTE MYELOID LEUKAEMIA
     Dosage: 100 MG/M2, INDUCTION, DAILY BY CONTINUOUS INFUSION
     Route: 041
     Dates: start: 20191126, end: 20191202
  14. PLACEBO [Suspect]
     Active Substance: UNSPECIFIED INGREDIENT
     Indication: ACUTE MYELOID LEUKAEMIA
     Dosage: 100 MG, 1X/DAY, CONTINUOUS
     Route: 048
     Dates: start: 20191126, end: 20191216
  15. PARACETAMOL [Suspect]
     Active Substance: ACETAMINOPHEN
     Indication: PYREXIA
     Dosage: 1 G, 2X/DAY
     Route: 042
     Dates: start: 20191127
  16. ENTERO?TEKNOSAL [Concomitant]
     Indication: DIARRHOEA
     Dosage: 10 TBL, 2X/DAY
     Route: 048
     Dates: start: 20191127
  17. RIBOSETRON [Concomitant]
     Active Substance: GRANISETRON HYDROCHLORIDE
     Indication: NAUSEA
     Dosage: 1 MG, 1X/DAY
     Route: 042
     Dates: start: 20191126, end: 20191130
  18. SULTANOL FORTE [Concomitant]
     Indication: DYSPNOEA
     Dosage: 2.5 MG, 1X/DAY
     Route: 055
     Dates: start: 20191130, end: 20191204
  19. CAPROS AKUT [Concomitant]
     Indication: PAIN
     Dosage: 10 MG, 2X/DAY
     Route: 048
     Dates: start: 20191204, end: 20191211
  20. COTRIM FORTE [Concomitant]
     Active Substance: SULFAMETHOXAZOLE\TRIMETHOPRIM
     Indication: ANTIBIOTIC PROPHYLAXIS
     Dosage: 960 MG, 3X/WEEK
     Route: 048
     Dates: start: 20191204
  21. KALIUMCHLORID [Concomitant]
     Active Substance: POTASSIUM CHLORIDE
     Indication: HYPOKALAEMIA
     Dosage: 8 MMOL/ML, CONTINUOUS
     Route: 042
     Dates: start: 20191130, end: 20191204
  22. NOXAFIL [Concomitant]
     Active Substance: POSACONAZOLE
     Indication: INFECTION PROPHYLAXIS
     Dosage: 300 MG, 2X/DAY
     Route: 048
     Dates: start: 20191129
  23. GRANISETRON [Concomitant]
     Active Substance: GRANISETRON
     Indication: NAUSEA
     Dosage: 1 MG, 2X/DAY
     Route: 042
     Dates: start: 20191128, end: 20191204
  24. LOPERAMID [Concomitant]
     Active Substance: LOPERAMIDE
     Indication: DIARRHOEA
     Dosage: 4 MG, 2X/DAY
     Route: 048
     Dates: start: 20191130, end: 20191130
  25. KALINOR [POTASSIUM CHLORIDE] [Concomitant]
     Active Substance: POTASSIUM CHLORIDE
     Indication: HYPOKALAEMIA
     Dosage: 40 MMOL, 1X/DAY
     Route: 048
     Dates: start: 20191130, end: 20191207
  26. AMPHO?MORONAL [Concomitant]
     Active Substance: AMPHOTERICIN B
     Indication: ANTIFUNGAL PROPHYLAXIS
     Dosage: 5 ML, 4X/DAY
     Route: 048
     Dates: start: 20191126, end: 20191130
  27. NOVALGIN (METAMIZOLE SODIUM) [Concomitant]
     Active Substance: METAMIZOLE SODIUM
     Indication: PAIN
     Dosage: 1 G, 2X/DAY
     Route: 042
     Dates: start: 20191120
  28. VOMEX [Concomitant]
     Active Substance: DIMENHYDRINATE
     Indication: NAUSEA
     Dosage: 62 MG, 1X/DAY
     Route: 042
     Dates: start: 20191128, end: 20191128
  29. FENISTIL [Concomitant]
     Active Substance: DIMETHINDENE
     Indication: DRUG ERUPTION
     Dosage: 1 MG, 1X/DAY
     Route: 061
     Dates: start: 20191203
  30. CLARITHROMYCIN. [Concomitant]
     Active Substance: CLARITHROMYCIN
     Indication: SEPSIS
     Dosage: 500 MG, 1X/DAY
     Route: 042
     Dates: start: 20191207, end: 20191209
  31. MEROPENEM. [Suspect]
     Active Substance: MEROPENEM
     Indication: SEPSIS
     Dosage: 1 G, 3X/DAY
     Route: 042
     Dates: start: 20191201, end: 20191204
  32. TAZOBAC [Suspect]
     Active Substance: PIPERACILLIN SODIUM\TAZOBACTAM SODIUM
     Indication: C-REACTIVE PROTEIN INCREASED
     Dosage: 4.5 G, 3X/DAY
     Route: 042
     Dates: start: 20191116, end: 20191211
  33. NOVALGIN (METAMIZOLE SODIUM) [Concomitant]
     Active Substance: METAMIZOLE SODIUM
     Indication: PYREXIA
  34. CAPHOSOL [CALCIUM CHLORIDE;SODIUM CHLORIDE;SODIUM PHOSPHATE DIBASIC;SO [Concomitant]
     Indication: ORAL DISORDER
     Dosage: 1 ML, 1X/DAY
     Route: 048
     Dates: start: 20191206, end: 20191206

REACTIONS (1)
  - Drug-induced liver injury [Recovered/Resolved]

NARRATIVE: CASE EVENT DATE: 20191212
